FAERS Safety Report 7904435-1 (Version None)
Quarter: 2011Q4

REPORT INFORMATION
  Report Type: 
  Country: None (occurrence: None)
  Receive Date: 20111109
  Receipt Date: 20111107
  Transmission Date: 20120403
  Serious: Yes (Hospitalization, Other)
  Sender: FDA-Public Use
  Company Number: US-PFIZER INC-2011054230

PATIENT
  Sex: Male

DRUGS (3)
  1. CHANTIX [Suspect]
     Indication: SMOKING CESSATION THERAPY
     Dosage: STARTER PACK
     Dates: start: 20080501, end: 20080801
  2. SEROQUEL [Concomitant]
     Indication: BIPOLAR I DISORDER
     Dosage: UNK
     Dates: start: 19980101
  3. SEROQUEL [Concomitant]
     Indication: SCHIZOAFFECTIVE DISORDER

REACTIONS (2)
  - INJURY [None]
  - SUICIDE ATTEMPT [None]
